FAERS Safety Report 13359520 (Version 1)
Quarter: 2017Q1

REPORT INFORMATION
  Report Type: Report from Study
  Country: FR (occurrence: FR)
  Receive Date: 20170322
  Receipt Date: 20170322
  Transmission Date: 20170429
  Serious: Yes (Death, Hospitalization, Other)
  Sender: FDA-Public Use
  Company Number: FR-INCYTE CORPORATION-2016IN007581

PATIENT
  Age: 77 Year
  Sex: Male

DRUGS (9)
  1. AMLODIPINE [Concomitant]
     Active Substance: AMLODIPINE BESYLATE
     Indication: HYPERTENSION
     Dosage: 5 MG, QD
     Route: 065
     Dates: start: 20161013
  2. JAKAVI [Suspect]
     Active Substance: RUXOLITINIB
     Indication: MYELOFIBROSIS
     Dosage: 10 MG, QD
     Route: 048
     Dates: start: 20160418, end: 20160824
  3. LEVOTHYROX [Concomitant]
     Active Substance: LEVOTHYROXINE
     Indication: HYPOTHYROIDISM
     Dosage: 125 UG, QD
     Route: 065
     Dates: start: 20110930
  4. ALFACALCIDOL [Concomitant]
     Active Substance: ALFACALCIDOL
     Indication: HYPERPARATHYROIDISM SECONDARY
     Dosage: 0.25 UG, QD
     Route: 065
     Dates: start: 20161013
  5. CALCIUM CARBONATE AND VITAMIN D [Concomitant]
     Active Substance: CALCIUM CARBONATE\VITAMIN D
     Indication: HYPOVITAMINOSIS
  6. JAKAVI [Suspect]
     Active Substance: RUXOLITINIB
     Dosage: 10 MG, QD
     Route: 048
     Dates: start: 20161216
  7. ALLOPURINOL. [Concomitant]
     Active Substance: ALLOPURINOL
     Indication: GOUT
     Dosage: 300 MG, QD
     Route: 065
     Dates: start: 20110204
  8. CALCIUM CARBONATE AND VITAMIN D [Concomitant]
     Active Substance: CALCIUM CARBONATE\VITAMIN D
     Indication: CALCIUM DEFICIENCY
     Dosage: UNK UNK, QD (1G/800 IU)
     Route: 065
     Dates: start: 20161013
  9. URAPIDIL [Concomitant]
     Active Substance: URAPIDIL
     Indication: HYPERTENSION
     Dosage: 30 MG, BID
     Route: 065
     Dates: start: 20161014

REACTIONS (10)
  - Proteinuria [Not Recovered/Not Resolved]
  - Scleroderma [Not Recovered/Not Resolved]
  - Rhinitis [Recovered/Resolved with Sequelae]
  - Chronic kidney disease [Fatal]
  - Hypertension [Not Recovered/Not Resolved]
  - Gamma-glutamyltransferase increased [Unknown]
  - Photosensitivity reaction [Not Recovered/Not Resolved]
  - Diarrhoea [Recovered/Resolved]
  - Haemosiderosis [Unknown]
  - Raynaud^s phenomenon [Not Recovered/Not Resolved]

NARRATIVE: CASE EVENT DATE: 20160704
